FAERS Safety Report 5922910-6 (Version None)
Quarter: 2008Q4

REPORT INFORMATION
  Report Type: 
  Country: None (occurrence: None)
  Receive Date: 20081017
  Receipt Date: 20081009
  Transmission Date: 20090506
  Serious: Yes (Other)
  Sender: FDA-Public Use
  Company Number: US-GENENTECH-269863

PATIENT
  Age: 36 Year
  Sex: Male

DRUGS (2)
  1. RITUXAN [Suspect]
     Indication: CASTLEMAN'S DISEASE
     Dosage: 375 MG/M2, 1/WEEK
  2. PREDNISONE TAB [Concomitant]
     Indication: CASTLEMAN'S DISEASE
     Dosage: 1 MG/KG, UNK

REACTIONS (1)
  - KAPOSI'S SARCOMA [None]
